FAERS Safety Report 9026678 (Version 2)
Quarter: 2013Q2

REPORT INFORMATION
  Report Type: Spontaneous
  Country: US (occurrence: None)
  Receive Date: 20120525
  Receipt Date: 20120827
  Transmission Date: 20140414
  Serious: Yes (Hospitalization)
  Sender: FDA-Public Use
  Company Number: 350308

PATIENT
  Age: 75 Year
  Sex: Male

DRUGS (10)
  1. VICTOZA (LIRAGLUTIDE) SOLUTION FOR INJECTION, 6 MG/ML [Suspect]
     Indication: TYPE 2 DIABETES MELLITUS
     Route: 058
     Dates: start: 20100419, end: 20120421
  2. DOXYCYCLINE (DOXYCYCLINE) [Suspect]
     Indication: PRODUCT USED FOR UNKNOWN INDICATION
  3. LASIX (00032601) (FUROSEMIDE) [Concomitant]
  4. LANTUS (INSULIN GLARGINE) [Concomitant]
  5. GLIMEPIRIDE (GLIMEPIRIDE) [Concomitant]
  6. POTASSIUM (POTASSIUM) [Concomitant]
  7. VYTORIN (EZETIMIBE, SIMVASTATIN) [Concomitant]
  8. ALLOPURINOL [Concomitant]
  9. ATENOLOL (ATENOLOL) [Concomitant]
  10. PRILOSEC (00661201) (OMEPRAZOLE) [Concomitant]

REACTIONS (1)
  - Oedematous pancreatitis [None]
